FAERS Safety Report 5079548-5 (Version None)
Quarter: 2006Q3

REPORT INFORMATION
  Report Type: 
  Country: None (occurrence: None)
  Receive Date: 20060811
  Receipt Date: 20060811
  Transmission Date: 20061208
  Serious: Yes (Life-Threatening, Hospitalization)
  Sender: FDA-Public Use
  Company Number: None

PATIENT
  Age: 64 Year
  Sex: Male

DRUGS (3)
  1. PHENYTOIN [Suspect]
     Indication: CONVULSION PROPHYLAXIS
     Dosage: 100MG   TID   PO
     Route: 048
     Dates: start: 20060711, end: 20060808
  2. VICODIN [Concomitant]
  3. ZANTAC [Concomitant]

REACTIONS (9)
  - EYE SWELLING [None]
  - NAUSEA [None]
  - ORAL INTAKE REDUCED [None]
  - RADIATION MUCOSITIS [None]
  - RADIATION OESOPHAGITIS [None]
  - RADIATION SKIN INJURY [None]
  - STEVENS-JOHNSON SYNDROME [None]
  - TOXIC EPIDERMAL NECROLYSIS [None]
  - VOMITING [None]
